FAERS Safety Report 21821902 (Version 1)
Quarter: 2023Q1

REPORT INFORMATION
  Report Type: Report from Study
  Country: US (occurrence: US)
  Receive Date: 20230105
  Receipt Date: 20230105
  Transmission Date: 20230417
  Serious: No
  Sender: FDA-Public Use
  Company Number: US-ABBVIE-4229885

PATIENT
  Sex: Female

DRUGS (1)
  1. HUMIRA [Suspect]
     Active Substance: ADALIMUMAB
     Indication: Psoriasis
     Dosage: ONSET DATE OF EVENT PSORIASIS FLARE-UP WAS 2022.
     Route: 058

REACTIONS (2)
  - COVID-19 [Recovering/Resolving]
  - Psoriasis [Recovering/Resolving]
